FAERS Safety Report 6216563-X (Version None)
Quarter: 2009Q2

REPORT INFORMATION
  Report Type: 
  Country: None (occurrence: None)
  Receive Date: 20090605
  Receipt Date: 20090519
  Transmission Date: 20091009
  Serious: Yes (Other)
  Sender: FDA-Public Use
  Company Number: JP-GENENTECH-277120

PATIENT
  Sex: Male
  Weight: 58 kg

DRUGS (4)
  1. AVASTIN [Suspect]
     Indication: COLORECTAL CANCER METASTATIC
     Dosage: 290 MG, Q2W
     Route: 041
     Dates: start: 20081112, end: 20090301
  2. ELPLAT [Suspect]
     Indication: COLORECTAL CANCER METASTATIC
     Dosage: 130 MG, Q2W
     Route: 041
     Dates: start: 20081112
  3. FLUOROURACIL [Suspect]
     Indication: COLORECTAL CANCER METASTATIC
     Dosage: 600 MG, Q2W
     Route: 042
     Dates: start: 20081112
  4. CALCIUM LEVOFOLINATE [Suspect]
     Indication: COLORECTAL CANCER METASTATIC
     Dosage: 320 MG, Q2W
     Route: 041
     Dates: start: 20081112

REACTIONS (2)
  - HYPERTENSION [None]
  - INTERSTITIAL LUNG DISEASE [None]
